FAERS Safety Report 4446019-6 (Version None)
Quarter: 2004Q3

REPORT INFORMATION
  Report Type: 
  Country: None (occurrence: None)
  Receive Date: 20040910
  Receipt Date: 20040908
  Transmission Date: 20050211
  Serious: Yes (Death)
  Sender: FDA-Public Use
  Company Number: 89

PATIENT
  Age: 48 Year
  Sex: Male

DRUGS (5)
  1. MELPHALAN [Suspect]
     Indication: MULTIPLE MYELOMA
     Route: 042
     Dates: start: 20040620
  2. THALIDOMIDE [Suspect]
     Indication: MULTIPLE MYELOMA
     Route: 048
  3. DEXAMETHASONE [Concomitant]
  4. STEM CELL TRANSPLANT [Concomitant]
     Dates: start: 20040620
  5. CHEMOTHERAPY [Concomitant]
     Dates: start: 20040620, end: 20040621

REACTIONS (6)
  - APNOEIC ATTACK [None]
  - BLOOD PH DECREASED [None]
  - BRADYCARDIA [None]
  - ELECTROMECHANICAL DISSOCIATION [None]
  - HYPOTENSION [None]
  - SUDDEN CARDIAC DEATH [None]
